FAERS Safety Report 14440824 (Version 1)
Quarter: 2018Q1

REPORT INFORMATION
  Report Type: Spontaneous
  Country: US (occurrence: US)
  Receive Date: 20180125
  Receipt Date: 20180125
  Transmission Date: 20180509
  Serious: No
  Sender: FDA-Public Use
  Company Number: US-AMGEN-USASP2017173945

PATIENT
  Sex: Female

DRUGS (15)
  1. ALENDRONATE [Concomitant]
     Active Substance: ALENDRONATE SODIUM
     Dosage: 70 MG, UNK
  2. AMLODIPINE B [Concomitant]
     Dosage: 5 MG, UNK
  3. CLINDAMYCIN. [Concomitant]
     Active Substance: CLINDAMYCIN
     Dosage: 150 MG, UNK
  4. MEMANTINE HCL [Concomitant]
     Active Substance: MEMANTINE
     Dosage: 10 MG, UNK
  5. REPATHA [Suspect]
     Active Substance: EVOLOCUMAB
     Indication: PERIPHERAL VASCULAR DISORDER
     Dosage: 140 MG/ML, Q2WK
     Route: 058
  6. PANTOPRAZOLE [Concomitant]
     Active Substance: PANTOPRAZOLE
     Dosage: 40 MG, UNK
     Route: 065
  7. VALSARTAN + HIDROCLOROTIAZIDA [Concomitant]
     Active Substance: HYDROCHLOROTHIAZIDE\VALSARTAN
     Dosage: 160-25 MG
     Route: 065
  8. BUTALBITAL [Concomitant]
     Active Substance: BUTALBITAL
     Dosage: 50-300-4
  9. ASPIRIN. [Concomitant]
     Active Substance: ASPIRIN
     Dosage: 25-200 MG
  10. CYANOCOBALAMIN. [Concomitant]
     Active Substance: CYANOCOBALAMIN
     Dosage: 1000 MCG, UNK
  11. LEVOTHYROXIN [Concomitant]
     Active Substance: LEVOTHYROXINE
     Dosage: 25 MUG, UNK
     Route: 065
  12. ZETIA [Concomitant]
     Active Substance: EZETIMIBE
     Dosage: 10 MG, UNK
     Route: 065
  13. EXELON [Concomitant]
     Active Substance: RIVASTIGMINE TARTRATE
     Dosage: 13.3 MG, QD
     Route: 065
  14. DULOXETINE. [Concomitant]
     Active Substance: DULOXETINE
     Dosage: 60 MG, UNK
     Route: 065
  15. QUETIAPINE FUMARAT [Concomitant]
     Active Substance: QUETIAPINE FUMARATE
     Dosage: 25 MG, UNK
     Route: 065

REACTIONS (1)
  - Dizziness [Unknown]
